FAERS Safety Report 15428794 (Version 2)
Quarter: 2018Q4

REPORT INFORMATION
  Report Type: Report from Study
  Country: CN (occurrence: CN)
  Receive Date: 20180926
  Receipt Date: 20181109
  Transmission Date: 20190204
  Serious: Yes (Hospitalization)
  Sender: FDA-Public Use
  Company Number: CN-ASTRAZENECA-2018SF23310

PATIENT
  Age: 22501 Day
  Sex: Male
  Weight: 64 kg

DRUGS (7)
  1. AZD6140 [Suspect]
     Active Substance: TICAGRELOR
     Indication: PERCUTANEOUS CORONARY INTERVENTION
     Route: 048
     Dates: start: 20171125
  2. PERINDOPRIL [Concomitant]
     Active Substance: PERINDOPRIL
     Indication: HYPERTENSION
     Route: 048
     Dates: start: 2017
  3. AMLODIPINE BESYLATE. [Concomitant]
     Active Substance: AMLODIPINE BESYLATE
     Indication: HYPERTENSION
     Route: 048
     Dates: start: 2017
  4. ASPIRIN. [Suspect]
     Active Substance: ASPIRIN
     Indication: PERCUTANEOUS CORONARY INTERVENTION
     Route: 048
     Dates: start: 20171125, end: 20180228
  5. METOPROLOL SUCCINATE. [Concomitant]
     Active Substance: METOPROLOL SUCCINATE
     Indication: HYPERTENSION
     Route: 048
     Dates: start: 2017
  6. AZD6140 [Suspect]
     Active Substance: TICAGRELOR
     Indication: CARDIOVASCULAR DISORDER
     Route: 048
     Dates: start: 20171125
  7. ASPIRIN. [Suspect]
     Active Substance: ASPIRIN
     Indication: CARDIOVASCULAR DISORDER
     Route: 048
     Dates: start: 20171125, end: 20180228

REACTIONS (2)
  - Lung infection [Recovered/Resolved]
  - Pneumonia [Recovered/Resolved]

NARRATIVE: CASE EVENT DATE: 20180219
